FAERS Safety Report 10727447 (Version 1)
Quarter: 2015Q1

REPORT INFORMATION
  Report Type: Spontaneous
  Country: US (occurrence: US)
  Receive Date: 20150121
  Receipt Date: 20150121
  Transmission Date: 20150721
  Serious: No
  Sender: FDA-Public Use
  Company Number: US-GILEAD-2015-0132618

PATIENT
  Age: 62 Year
  Sex: Male

DRUGS (3)
  1. SOVALDI [Suspect]
     Active Substance: SOFOSBUVIR
     Indication: HEPATITIS C
     Dosage: 2 DF, QD
     Route: 048
     Dates: start: 201501
  2. SOVALDI [Suspect]
     Active Substance: SOFOSBUVIR
     Dosage: 1 DF, QD
     Route: 048
     Dates: start: 201501
  3. RIBAVIRIN. [Concomitant]
     Active Substance: RIBAVIRIN
     Indication: HEPATITIS C

REACTIONS (1)
  - Overdose [Recovered/Resolved]
